FAERS Safety Report 24589499 (Version 1)
Quarter: 2024Q4

REPORT INFORMATION
  Report Type: Spontaneous
  Country: AU (occurrence: AU)
  Receive Date: 20241107
  Receipt Date: 20241107
  Transmission Date: 20250115
  Serious: Yes (Hospitalization)
  Sender: BAXTER
  Company Number: AU-BAXTER-2024BAX027078

PATIENT
  Age: 67 Year
  Sex: Female
  Weight: 52.2 kg

DRUGS (33)
  1. CYCLOPHOSPHAMIDE [Suspect]
     Active Substance: CYCLOPHOSPHAMIDE
     Indication: Diffuse large B-cell lymphoma
     Dosage: UNK, Q21 DAYS; UNKNOWN, INFUSION, IV/PO
     Route: 065
     Dates: start: 20211202
  2. CYCLOPHOSPHAMIDE [Suspect]
     Active Substance: CYCLOPHOSPHAMIDE
     Dosage: 1100 MG, THE LAST  DOSE PR, (C3D1)
     Route: 042
     Dates: start: 20220113, end: 20220113
  3. DOXORUBICIN [Suspect]
     Active Substance: DOXORUBICIN
     Indication: Diffuse large B-cell lymphoma
     Dosage: 75 MG, Q21 DAYS; UNKNOWN
     Route: 042
     Dates: start: 20211202
  4. DOXORUBICIN [Suspect]
     Active Substance: DOXORUBICIN
     Dosage: UNK, THE LAST  DOSE PRIOR TO ONSET OF THE EVENT ANEMIA (SECOND OCCURRENCE)
     Route: 042
     Dates: start: 20220113, end: 20220113
  5. RITUXIMAB [Suspect]
     Active Substance: RITUXIMAB
     Indication: Diffuse large B-cell lymphoma
     Dosage: 600MG, Q21 DAYS; UNKNOWN, IV/PO, ONGOING
     Route: 042
     Dates: start: 20211202
  6. RITUXIMAB [Suspect]
     Active Substance: RITUXIMAB
     Dosage: UNK, THE LAST  DOSE PRIOR TO ONSET OF THE EVENT ANEMIA (SECOND OCCURRENCE)
     Route: 065
     Dates: start: 20220113, end: 20220113
  7. VINCRISTINE [Suspect]
     Active Substance: VINCRISTINE
     Indication: Diffuse large B-cell lymphoma
     Dosage: 2MG, Q21 DAYS, ONGOING, IV/PO
     Route: 042
     Dates: start: 20211202
  8. VINCRISTINE [Suspect]
     Active Substance: VINCRISTINE
     Dosage: THE LAST  DOSE PRIOR TO ONSET OF THE EVENT ANEMIA (SECOND OCCURRENCE)
     Route: 042
     Dates: start: 20220113
  9. PREDNISOLONE [Suspect]
     Active Substance: PREDNISOLONE
     Indication: Diffuse large B-cell lymphoma
     Dosage: 100MG
     Route: 048
     Dates: start: 20211201
  10. PREDNISOLONE [Suspect]
     Active Substance: PREDNISOLONE
     Dosage: UNK, Q21 DAYS, IV/PO, ONGOING
     Route: 065
     Dates: start: 20211202
  11. PREDNISOLONE [Suspect]
     Active Substance: PREDNISOLONE
     Dosage: UNK, THE LAST  DOSE PRIOR TO ONSET OF THE EVENT ANEMIA (SECOND OCCURRENCE)
     Route: 065
  12. ALLOPURINOL [Concomitant]
     Active Substance: ALLOPURINOL
     Indication: Tumour lysis syndrome
     Dosage: 300MG, ONGOING
     Route: 048
     Dates: start: 20211126
  13. ALLOPURINOL [Concomitant]
     Active Substance: ALLOPURINOL
     Indication: Prophylaxis
  14. VENTOLIN HFA [Concomitant]
     Active Substance: ALBUTEROL SULFATE
     Indication: Chronic obstructive pulmonary disease
     Dosage: 100 MCG INHALER, START DATE: 2018
  15. VENTOLIN HFA [Concomitant]
     Active Substance: ALBUTEROL SULFATE
     Dosage: 2 PUFFS PRN SINCE AN UNKNOWN DATE IN 2018
  16. STIOLTO RESPIMAT [Concomitant]
     Active Substance: OLODATEROL HYDROCHLORIDE\TIOTROPIUM BROMIDE MONOHYDRATE
     Indication: Chronic obstructive pulmonary disease
     Dosage: (2.4 MCG INHALER, START DATE: 2018, ONGOING
  17. STIOLTO RESPIMAT [Concomitant]
     Active Substance: OLODATEROL HYDROCHLORIDE\TIOTROPIUM BROMIDE MONOHYDRATE
     Dosage: 2 PUFFS SINCE AN UNKNOWN DATE 2018
  18. NEXIUM [Concomitant]
     Active Substance: ESOMEPRAZOLE MAGNESIUM
     Indication: Gastrooesophageal reflux disease
     Dosage: 20 MG, START DATE: 2017
     Route: 048
  19. DESVENLAFAXINE [Concomitant]
     Active Substance: DESVENLAFAXINE
     Indication: Depression
     Dosage: 100 MG, START DATE: 2018, ONGOING
     Route: 065
  20. CICLESONIDE [Concomitant]
     Active Substance: CICLESONIDE
     Indication: Chronic obstructive pulmonary disease
     Dosage: 160 MCG INHALER, START DATE: 2018
  21. CICLESONIDE [Concomitant]
     Active Substance: CICLESONIDE
     Dosage: 2 PUFFS SINCE AN UNKNOWN DATE IN 2018
  22. POLYETHYLENE GLYCOL 3350\POTASSIUM CHLORIDE\SODIUM BICARBONATE\SODIUM [Concomitant]
     Active Substance: POLYETHYLENE GLYCOL 3350\POTASSIUM CHLORIDE\SODIUM BICARBONATE\SODIUM CHLORIDE
     Dosage: 1 SACHET
     Route: 048
     Dates: start: 20211216
  23. ASPIRIN [Concomitant]
     Active Substance: ASPIRIN
     Indication: Prophylaxis
     Dosage: 100 MG, DAILY
     Route: 048
  24. UMECLIDINIUM BROMIDE\VILANTEROL TRIFENATATE [Concomitant]
     Active Substance: UMECLIDINIUM BROMIDE\VILANTEROL TRIFENATATE
     Indication: Chronic obstructive pulmonary disease
     Dosage: 1 PUFF (25 MCG(MICROGRAM)/62.5MG) QD
     Route: 065
  25. SULFAMETHOXAZOLE\TRIMETHOPRIM [Concomitant]
     Active Substance: SULFAMETHOXAZOLE\TRIMETHOPRIM
     Indication: Prophylaxis
     Dosage: SULFAMETHOXAZOLE 800 MG AND TRIMETHOPRIM 160 MG 1 TAB
     Route: 048
  26. VALACYCLOVIR HYDROCHLORIDE [Concomitant]
     Active Substance: VALACYCLOVIR HYDROCHLORIDE
     Indication: Prophylaxis
     Dosage: 500 MG, QD
     Route: 048
  27. ESOMEPRAZOLE [Concomitant]
     Active Substance: ESOMEPRAZOLE
     Dosage: 20 MG, QD
  28. CHLORHEXIDINE [Concomitant]
     Active Substance: CHLORHEXIDINE
     Indication: Dental disorder prophylaxis
     Dosage: 10 ML, QID
     Route: 048
  29. CALCIUM CHLORIDE\SODIUM CHLORIDE\SODIUM PHOSPHATE, DIBASIC, ANHYDROUS\ [Concomitant]
     Active Substance: CALCIUM CHLORIDE\SODIUM CHLORIDE\SODIUM PHOSPHATE, DIBASIC, ANHYDROUS\SODIUM PHOSPHATE, MONOBASIC, A
     Dosage: UNK
     Route: 065
  30. NYSTATIN [Concomitant]
     Active Substance: NYSTATIN
     Indication: Oral candidiasis
     Dosage: 1 ML DROP, QID
     Route: 065
  31. LIDOCAINE [Concomitant]
     Active Substance: LIDOCAINE
     Dosage: 15 ML, PRN (AS NEEDED)
     Route: 048
     Dates: start: 20220121
  32. LORATADINE [Concomitant]
     Active Substance: LORATADINE
     Dosage: 10 MG, ONCE
     Route: 048
     Dates: start: 20220120
  33. ACETAMINOPHEN [Concomitant]
     Active Substance: ACETAMINOPHEN
     Dosage: 1000 MG, ONCE
     Route: 048
     Dates: start: 20220120

REACTIONS (5)
  - Lethargy [Unknown]
  - Anaemia [Recovered/Resolved]
  - Anaemia [Recovered/Resolved]
  - Cough [Unknown]
  - Dizziness [Unknown]

NARRATIVE: CASE EVENT DATE: 20211215
